FAERS Safety Report 9166247 (Version 1)
Quarter: 2013Q1

REPORT INFORMATION
  Report Type: Spontaneous
  Country: DE (occurrence: DE)
  Receive Date: 20130315
  Receipt Date: 20130315
  Transmission Date: 20140127
  Serious: Yes (Other)
  Sender: FDA-Public Use
  Company Number: DE-UCBSA-080345

PATIENT
  Age: 72 Year
  Sex: Female

DRUGS (2)
  1. CIMZIA [Suspect]
     Dates: start: 201301
  2. HUMIRA [Concomitant]

REACTIONS (1)
  - Skin reaction [Unknown]
